FAERS Safety Report 9915519 (Version 2)
Quarter: 2014Q1

REPORT INFORMATION
  Report Type: Report from Study
  Country: US (occurrence: US)
  Receive Date: 20140221
  Receipt Date: 20140221
  Transmission Date: 20141002
  Serious: Yes (Other)
  Sender: FDA-Public Use
  Company Number: US-BRISTOL-MYERS SQUIBB COMPANY-19886183

PATIENT
  Age: 64 Year
  Sex: Male

DRUGS (1)
  1. ABATACEPT SUBQ INJECTION 125MG/ML [Suspect]
     Indication: RHEUMATOID ARTHRITIS
     Dosage: RECENT DOSE 1DEC13
     Route: 058

REACTIONS (4)
  - Arthropathy [Unknown]
  - Synovial cyst [Unknown]
  - Staphylococcal infection [Unknown]
  - Ulcer [Unknown]
